FAERS Safety Report 9690304 (Version 1)
Quarter: 2013Q4

REPORT INFORMATION
  Report Type: Spontaneous
  Country: US (occurrence: US)
  Receive Date: 20131115
  Receipt Date: 20131115
  Transmission Date: 20140711
  Serious: No
  Sender: FDA-Public Use
  Company Number: US-PFIZER INC-2013322571

PATIENT
  Sex: 0

DRUGS (1)
  1. PRISTIQ [Suspect]
     Dosage: UNK

REACTIONS (3)
  - Wrong technique in drug usage process [Unknown]
  - Hyperhidrosis [Unknown]
  - Panic attack [Unknown]
